FAERS Safety Report 7320034-7 (Version None)
Quarter: 2011Q1

REPORT INFORMATION
  Report Type: 
  Country: None (occurrence: None)
  Receive Date: 20110228
  Receipt Date: 20110217
  Transmission Date: 20110831
  Serious: Yes (Other)
  Sender: FDA-Public Use
  Company Number: US-JNJFOC-20110205822

PATIENT
  Age: 89 Year
  Sex: Female
  Weight: 56.7 kg

DRUGS (4)
  1. BENADRYL [Suspect]
     Indication: PRURITUS
     Dosage: ONE TEASPOONFUL
     Route: 048
  2. BENADRYL [Suspect]
     Route: 048
  3. SYNTHROID [Concomitant]
     Indication: HYPOTHYROIDISM
     Dosage: ONE PILL
     Route: 048
  4. LOTREL [Concomitant]
     Indication: HYPERTENSION
     Dosage: ONE PILL AT NIGHT
     Route: 048

REACTIONS (3)
  - PRODUCT QUALITY ISSUE [None]
  - AMNESIA [None]
  - OFF LABEL USE [None]
